FAERS Safety Report 6843589-5 (Version None)
Quarter: 2010Q2

REPORT INFORMATION
  Report Type: 
  Country: None (occurrence: None)
  Receive Date: 20100629
  Receipt Date: 20100325
  Transmission Date: 20101027
  Serious: No
  Sender: FDA-Public Use
  Company Number: US-WYE-H14658310

PATIENT
  Age: 78 Year
  Sex: Male

DRUGS (6)
  1. PRISTIQ [Suspect]
     Indication: IRRITABILITY
     Dosage: 50 MG 1X PER 1 DAY50 MG 1X PER 1 DAY
     Dates: start: 20090101, end: 20090101
  2. PRISTIQ [Suspect]
     Indication: IRRITABILITY
     Dosage: 50 MG 1X PER 1 DAY50 MG 1X PER 1 DAY
     Dates: start: 20100301
  3. CASODEX [Concomitant]
  4. ASPIRIN [Concomitant]
  5. CRESTOR [Concomitant]
  6. FLOMAX (MORNIFLUMATE) [Concomitant]

REACTIONS (5)
  - ASTHENIA [None]
  - BACK PAIN [None]
  - DRUG INEFFECTIVE [None]
  - EXCORIATION [None]
  - FALL [None]
